FAERS Safety Report 14882520 (Version 1)
Quarter: 2018Q2

REPORT INFORMATION
  Report Type: Spontaneous
  Country: FR (occurrence: FR)
  Receive Date: 20180511
  Receipt Date: 20180511
  Transmission Date: 20180711
  Serious: Yes (Other)
  Sender: FDA-Public Use
  Company Number: FR-MERCK KGAA-2047632

PATIENT
  Age: 31 Year
  Sex: Female

DRUGS (1)
  1. NOVOTHYROX [Suspect]
     Active Substance: LEVOTHYROXINE SODIUM
     Indication: AUTOIMMUNE HYPOTHYROIDISM
     Dates: start: 2017

REACTIONS (26)
  - Libido decreased [None]
  - Tracheitis [None]
  - Respiratory disorder [None]
  - Asthenia [None]
  - Arthralgia [None]
  - Loss of personal independence in daily activities [None]
  - Chills [None]
  - Burning sensation [None]
  - Fatigue [None]
  - Disturbance in attention [Not Recovered/Not Resolved]
  - Major depression [None]
  - Blood pressure decreased [None]
  - Affect lability [None]
  - Crying [None]
  - Myalgia [Not Recovered/Not Resolved]
  - Abdominal pain upper [None]
  - Blood thyroid stimulating hormone increased [None]
  - Anhedonia [None]
  - Asthma [None]
  - Mobility decreased [None]
  - Migraine [None]
  - General physical health deterioration [None]
  - Expiratory reserve volume decreased [None]
  - Weight increased [None]
  - Cough [Not Recovered/Not Resolved]
  - Dyspnoea exertional [Not Recovered/Not Resolved]

NARRATIVE: CASE EVENT DATE: 20171007
